FAERS Safety Report 18009925 (Version 1)
Quarter: 2020Q3

REPORT INFORMATION
  Report Type: Spontaneous
  Country: BR (occurrence: BR)
  Receive Date: 20200710
  Receipt Date: 20200710
  Transmission Date: 20201103
  Serious: Yes (Life-Threatening, Other)
  Sender: FDA-Public Use
  Company Number: BR-BAYER-2020-136289

PATIENT
  Sex: Female

DRUGS (1)
  1. MIRENA [Suspect]
     Active Substance: LEVONORGESTREL
     Indication: MENSTRUAL DISCOMFORT
     Dosage: 20 ?G PER DAY CONTINOUSLY
     Route: 015

REACTIONS (12)
  - Procedural pain [None]
  - Pelvic pain [Not Recovered/Not Resolved]
  - Skin haemorrhage [None]
  - Feeling of despair [None]
  - Suicidal ideation [None]
  - Suicide attempt [None]
  - Mood altered [None]
  - Nervousness [None]
  - Device expulsion [None]
  - Histrionic personality disorder [None]
  - Genital haemorrhage [Not Recovered/Not Resolved]
  - Urticaria [None]
